FAERS Safety Report 21261859 (Version 2)
Quarter: 2022Q4

REPORT INFORMATION
  Report Type: Report from Study
  Country: MX (occurrence: MX)
  Receive Date: 20220827
  Receipt Date: 20221003
  Transmission Date: 20230113
  Serious: Yes (Other)
  Sender: FDA-Public Use
  Company Number: MX-NOVARTISPH-NVSC2022MX156152

PATIENT
  Age: 83 Year
  Sex: Female
  Weight: 48 kg

DRUGS (10)
  1. ENTRESTO [Suspect]
     Active Substance: SACUBITRIL\VALSARTAN
     Indication: Mitral valve disease
     Dosage: 0.5 DOSAGE FORM (100 MG), BID
     Route: 048
     Dates: start: 202111, end: 202202
  2. ENTRESTO [Suspect]
     Active Substance: SACUBITRIL\VALSARTAN
     Indication: Pulmonary hypertension
     Dosage: 0.5 DOSAGE FORM, BID (200MG IN FOURTHS, AND TAKES ? TABLET EVERY 12 HOURS)
     Route: 048
     Dates: start: 202201
  3. ENTRESTO [Suspect]
     Active Substance: SACUBITRIL\VALSARTAN
     Dosage: 0.25 DOSAGE FORM, BID (200MG IN FOURTHS, AND TAKES ? TABLET EVERY 12 HOURS)
     Route: 048
     Dates: start: 202202
  4. CLOPIDOGREL [Suspect]
     Active Substance: CLOPIDOGREL BISULFATE
     Indication: Product used for unknown indication
     Dosage: 0.5 DOSAGE FORM, QD (EVERY 24 HOURS IN THE MORNING)
     Route: 048
     Dates: start: 20220119
  5. BISOPROLOL [Concomitant]
     Active Substance: BISOPROLOL
     Indication: Product used for unknown indication
     Dosage: 0.5 DOSAGE FORM, QD (EVERY 24 HOURS BY NIGHT)
     Route: 048
     Dates: start: 20220219
  6. FUROSEMIDE [Concomitant]
     Active Substance: FUROSEMIDE
     Indication: Product used for unknown indication
     Dosage: 1.5 DOSAGE FORM (ONE IN THE MORNING AND HALF AT NOON ONLY THE FIRST WEEK)
     Route: 048
     Dates: start: 20220216
  7. FUROSEMIDE [Concomitant]
     Active Substance: FUROSEMIDE
     Dosage: 1 DOSAGE FORM, QD (ONE IN THE MORNING )
     Route: 048
  8. SPIRONOLACTONE [Concomitant]
     Active Substance: SPIRONOLACTONE
     Indication: Product used for unknown indication
     Dosage: 1 DOSAGE FORM, QD (EVERY 24 HOURS BY MORNING)
     Route: 048
     Dates: start: 20220119
  9. SERTRALINE [Concomitant]
     Active Substance: SERTRALINE HYDROCHLORIDE
     Indication: Product used for unknown indication
     Dosage: 0.5 DOSAGE FORM, QD (EVERY 24 HOURS IN THE MORNING)
     Route: 048
     Dates: start: 20220216
  10. SILDENAFIL CITRATE [Concomitant]
     Active Substance: SILDENAFIL CITRATE
     Indication: Erectile dysfunction
     Dosage: 0.5 DOSAGE FORM, BID
     Route: 048
     Dates: start: 20220216

REACTIONS (5)
  - Pulmonary hypertension [Not Recovered/Not Resolved]
  - Fatigue [Unknown]
  - Dyspnoea [Unknown]
  - Wrong technique in product usage process [Unknown]
  - Off label use [Unknown]

NARRATIVE: CASE EVENT DATE: 20211101
